FAERS Safety Report 22268869 (Version 5)
Quarter: 2023Q4

REPORT INFORMATION
  Report Type: Report from Study
  Country: US (occurrence: US)
  Receive Date: 20230501
  Receipt Date: 20231104
  Transmission Date: 20240109
  Serious: Yes (Other)
  Sender: FDA-Public Use
  Company Number: US-002147023-NVSC2023US099144

PATIENT
  Sex: Female

DRUGS (1)
  1. XIIDRA [Suspect]
     Active Substance: LIFITEGRAST
     Indication: Product used for unknown indication
     Dosage: UNK
     Route: 047

REACTIONS (5)
  - Autoimmune disorder [Unknown]
  - Visual impairment [Unknown]
  - Hypoacusis [Unknown]
  - Illness [Unknown]
  - COVID-19 [Unknown]
